FAERS Safety Report 16082310 (Version 1)
Quarter: 2019Q1

REPORT INFORMATION
  Report Type: Spontaneous
  Country: DE (occurrence: DE)
  Receive Date: 20190318
  Receipt Date: 20190318
  Transmission Date: 20190418
  Serious: Yes (Other)
  Sender: FDA-Public Use
  Company Number: DE-AUROBINDO-AUR-APL-2019-009116

PATIENT

DRUGS (1)
  1. RAMIPRIL. [Suspect]
     Active Substance: RAMIPRIL
     Indication: HYPERTENSION
     Dosage: 5 MILLIGRAM, ONCE A DAY
     Route: 048
     Dates: start: 20160510

REACTIONS (10)
  - Arthralgia [Unknown]
  - Magnesium deficiency [Unknown]
  - Chest discomfort [Recovered/Resolved]
  - Muscle twitching [Recovered/Resolved]
  - Arrhythmia [Recovered/Resolved]
  - Blood pressure increased [Recovered/Resolved]
  - Extrasystoles [Unknown]
  - Hypertension [Unknown]
  - Restlessness [Unknown]
  - Tendon pain [Unknown]
